FAERS Safety Report 20935412 (Version 2)
Quarter: 2022Q2

REPORT INFORMATION
  Report Type: Spontaneous
  Country: JP (occurrence: JP)
  Receive Date: 20220609
  Receipt Date: 20220628
  Transmission Date: 20220721
  Serious: Yes (Other)
  Sender: FDA-Public Use
  Company Number: JP-DSJP-DSJ-2021-135594

PATIENT
  Age: 70 Year
  Sex: Male

DRUGS (5)
  1. DENOSUMAB [Suspect]
     Active Substance: DENOSUMAB
     Indication: Metastases to bone
     Dosage: 120 MILLIGRAM
     Route: 058
     Dates: start: 20190604, end: 20210922
  2. ZYTIGA [Concomitant]
     Active Substance: ABIRATERONE ACETATE
     Indication: Prostate cancer
     Dosage: 1000 MG, QD
     Route: 048
     Dates: start: 20190410
  3. PREDONINE [Concomitant]
     Active Substance: PREDNISOLONE
     Indication: Metastases to bone
     Dosage: 10 MILLIGRAM, QD
     Route: 048
     Dates: start: 20190410
  4. LEUPLIN [Concomitant]
     Active Substance: LEUPROLIDE ACETATE
     Indication: Prostate cancer
     Dosage: 3.75 MG, QD
     Route: 058
     Dates: start: 20190322
  5. CALCIUM CARBONATE\CHOLECALCIFEROL\MAGNESIUM CARBONATE [Concomitant]
     Active Substance: CALCIUM CARBONATE\CHOLECALCIFEROL\MAGNESIUM CARBONATE
     Indication: Metastases to bone
     Dosage: 2 DF, QD
     Route: 048
     Dates: start: 20190604

REACTIONS (3)
  - Cataract [Unknown]
  - Osteonecrosis of jaw [Recovered/Resolved with Sequelae]
  - Transitional cell carcinoma [Unknown]

NARRATIVE: CASE EVENT DATE: 20191021
